FAERS Safety Report 6305781-8 (Version None)
Quarter: 2009Q3

REPORT INFORMATION
  Report Type: 
  Country: None (occurrence: None)
  Receive Date: 20090812
  Receipt Date: 20090806
  Transmission Date: 20100115
  Serious: Yes (Hospitalization)
  Sender: FDA-Public Use
  Company Number: US-BIOGENIDEC-2009BI024908

PATIENT
  Age: 66 Year
  Sex: Female

DRUGS (2)
  1. AVONEX [Suspect]
     Indication: MULTIPLE SCLEROSIS
     Route: 030
     Dates: start: 19990301, end: 20030801
  2. AVONEX [Suspect]
     Route: 030
     Dates: start: 20030801

REACTIONS (3)
  - BLOOD POTASSIUM INCREASED [None]
  - CONSTIPATION [None]
  - DECREASED APPETITE [None]
